FAERS Safety Report 16263030 (Version 1)
Quarter: 2019Q2

REPORT INFORMATION
  Report Type: Spontaneous
  Country: CN (occurrence: CN)
  Receive Date: 20190502
  Receipt Date: 20190502
  Transmission Date: 20190711
  Serious: Yes (Other)
  Sender: FDA-Public Use
  Company Number: CN-ROCHE-2308308

PATIENT
  Age: 53 Year
  Sex: Male

DRUGS (9)
  1. VINCRISTINE [Suspect]
     Active Substance: VINCRISTINE
     Indication: B-CELL LYMPHOMA
     Route: 065
  2. PREDNISONE. [Suspect]
     Active Substance: PREDNISONE
     Indication: B-CELL LYMPHOMA
     Route: 065
  3. LENALIDOMIDE [Suspect]
     Active Substance: LENALIDOMIDE
     Indication: B-CELL LYMPHOMA
     Route: 065
  4. CYCLOPHOSPHAMIDE. [Suspect]
     Active Substance: CYCLOPHOSPHAMIDE
     Indication: B-CELL LYMPHOMA
     Route: 065
  5. RITUXIMAB. [Suspect]
     Active Substance: RITUXIMAB
     Indication: B-CELL LYMPHOMA
     Route: 065
  6. DOXORUBICIN [Suspect]
     Active Substance: DOXORUBICIN
     Indication: B-CELL LYMPHOMA
     Route: 065
  7. CHIDAMIDE [Suspect]
     Active Substance: TUCIDINOSTAT
     Indication: B-CELL LYMPHOMA
     Route: 065
  8. CHIDAMIDE [Suspect]
     Active Substance: TUCIDINOSTAT
     Route: 065
  9. CHIDAMIDE [Suspect]
     Active Substance: TUCIDINOSTAT
     Route: 065

REACTIONS (9)
  - Interstitial lung disease [Unknown]
  - Renal disorder [Unknown]
  - White blood cell count decreased [Unknown]
  - Ureteral disorder [Unknown]
  - Neutrophil count decreased [Unknown]
  - Diarrhoea [Recovering/Resolving]
  - Fatigue [Recovering/Resolving]
  - Platelet count decreased [Unknown]
  - Hypoxia [Unknown]
